FAERS Safety Report 19488355 (Version 2)
Quarter: 2021Q3

REPORT INFORMATION
  Report Type: Report from Study
  Country: US (occurrence: US)
  Receive Date: 20210702
  Receipt Date: 20210716
  Transmission Date: 20211014
  Serious: No
  Sender: FDA-Public Use
  Company Number: US-AGIOS-2106US02896

PATIENT

DRUGS (4)
  1. GRANISETRON [Concomitant]
     Active Substance: GRANISETRON
     Dosage: 3.1 MG, ONCE 24 HOURS BEFORE CHEMOTHERAPY/EVE
     Route: 061
  2. TIBSOVO [Suspect]
     Active Substance: IVOSIDENIB
     Indication: BRAIN NEOPLASM MALIGNANT
     Dosage: 250 MILLIGRAM, 2 TABLETS (500 MG), QD
     Route: 048
  3. LOMUSTINE. [Concomitant]
     Active Substance: LOMUSTINE
     Dosage: 210 MG, ONCE ONLY ON DAY 1 OF 42?DAY CYCLE
  4. VIMPAT [Concomitant]
     Active Substance: LACOSAMIDE
     Dosage: 300 MILLIGRAM, BID
     Route: 048

REACTIONS (2)
  - Nausea [Unknown]
  - Off label use [Unknown]
